FAERS Safety Report 17179484 (Version 1)
Quarter: 2019Q4

REPORT INFORMATION
  Report Type: Spontaneous
  Country: US (occurrence: US)
  Receive Date: 20191219
  Receipt Date: 20191219
  Transmission Date: 20200122
  Serious: Yes (Other)
  Sender: FDA-Public Use
  Company Number: US-SA-2019SA346327

PATIENT
  Age: 80 Year
  Sex: Female

DRUGS (1)
  1. LANTUS SOLOSTAR [Suspect]
     Active Substance: INSULIN GLARGINE
     Indication: TYPE 1 DIABETES MELLITUS
     Dosage: 30 U, QD
     Route: 065

REACTIONS (9)
  - Renal cancer [Unknown]
  - Vision blurred [Unknown]
  - Eye complication associated with device [Unknown]
  - Ovarian cancer [Unknown]
  - Malignant melanoma [Unknown]
  - Retinal disorder [Unknown]
  - Lichen planus [Unknown]
  - Gastrointestinal carcinoma [Unknown]
  - Cataract [Unknown]
